FAERS Safety Report 5554065-4 (Version None)
Quarter: 2007Q4

REPORT INFORMATION
  Report Type: 
  Country: None (occurrence: None)
  Receive Date: 20071212
  Receipt Date: 20071212
  Transmission Date: 20080405
  Serious: No
  Sender: FDA-Public Use
  Company Number: None

PATIENT
  Sex: Female
  Weight: 61.2356 kg

DRUGS (1)
  1. CHLORDIAZEPOXIDE HCL W/ CLIDINIUM BROMIDE [Suspect]
     Indication: IRRITABLE BOWEL SYNDROME
     Dosage: 5MG/2.5MG TID PO LAST TIME ONE TOOK GENERIC WAS 3-4 YRS AGO
     Route: 048

REACTIONS (3)
  - ABDOMINAL PAIN UPPER [None]
  - CONSTIPATION [None]
  - PHARMACEUTICAL PRODUCT COMPLAINT [None]
